FAERS Safety Report 19375019 (Version 4)
Quarter: 2021Q3

REPORT INFORMATION
  Report Type: Spontaneous
  Country: GR (occurrence: GR)
  Receive Date: 20210604
  Receipt Date: 20210723
  Transmission Date: 20211014
  Serious: No
  Sender: FDA-Public Use
  Company Number: GR-JNJFOC-20210553389

PATIENT
  Age: 81 Year
  Sex: Male
  Weight: 76 kg

DRUGS (15)
  1. DUROGESIC [Suspect]
     Active Substance: FENTANYL
  2. DUROGESIC [Suspect]
     Active Substance: FENTANYL
  3. DUROGESIC [Suspect]
     Active Substance: FENTANYL
     Indication: CHONDROMA
     Dosage: STRENGTH: 50.00 MCG/HR
     Route: 062
     Dates: start: 202103
  4. DUROGESIC [Suspect]
     Active Substance: FENTANYL
     Dosage: INCREASED TO 25G
     Route: 062
     Dates: start: 202103
  5. DUROGESIC [Suspect]
     Active Substance: FENTANYL
  6. DUROGESIC [Suspect]
     Active Substance: FENTANYL
     Indication: CHONDROMA
     Dosage: STRENGTH: 50.00 MCG/HR
     Route: 062
     Dates: start: 2021
  7. DUROGESIC [Suspect]
     Active Substance: FENTANYL
  8. DUROGESIC [Suspect]
     Active Substance: FENTANYL
  9. TRAMAL [Concomitant]
     Active Substance: TRAMADOL
     Indication: PAIN
     Dosage: MORNING/EVENING
     Route: 065
     Dates: start: 202103
  10. PARACETAMOL [Concomitant]
     Active Substance: ACETAMINOPHEN
     Indication: PAIN
     Dosage: USED INSTEAD OF TRAMAL
     Route: 065
  11. DUROGESIC [Suspect]
     Active Substance: FENTANYL
  12. DEPON [Concomitant]
     Active Substance: ACETAMINOPHEN
     Indication: PAIN
     Dosage: USED INSTEAD OF TRAMAL
     Route: 065
  13. DUROGESIC [Suspect]
     Active Substance: FENTANYL
     Route: 062
     Dates: start: 20210307
  14. DUROGESIC [Suspect]
     Active Substance: FENTANYL
  15. DUROGESIC [Suspect]
     Active Substance: FENTANYL

REACTIONS (3)
  - Application site erythema [Unknown]
  - Product adhesion issue [Unknown]
  - Application site rash [Unknown]

NARRATIVE: CASE EVENT DATE: 2021
